FAERS Safety Report 24949020 (Version 3)
Quarter: 2025Q1

REPORT INFORMATION
  Report Type: Spontaneous
  Country: AT (occurrence: AT)
  Receive Date: 20250210
  Receipt Date: 20250225
  Transmission Date: 20250408
  Serious: Yes (Death, Hospitalization, Other)
  Sender: SANDOZ
  Company Number: AT-ABBVIE-6109034

PATIENT
  Age: 51 Year
  Sex: Female

DRUGS (7)
  1. ADALIMUMAB [Suspect]
     Active Substance: ADALIMUMAB
     Indication: Crohn^s disease
     Route: 058
     Dates: start: 202201, end: 202201
  2. ADALIMUMAB [Suspect]
     Active Substance: ADALIMUMAB
     Indication: Colitis ulcerative
     Dosage: 40 MG, BIW
     Route: 058
  3. ADALIMUMAB [Suspect]
     Active Substance: ADALIMUMAB
     Route: 058
  4. VEDOLIZUMAB [Concomitant]
     Active Substance: VEDOLIZUMAB
     Route: 042
  5. VEDOLIZUMAB [Concomitant]
     Active Substance: VEDOLIZUMAB
     Indication: Product used for unknown indication
     Route: 042
     Dates: start: 202303, end: 202303
  6. VEDOLIZUMAB [Concomitant]
     Active Substance: VEDOLIZUMAB
     Route: 042
  7. VEDOLIZUMAB [Concomitant]
     Active Substance: VEDOLIZUMAB
     Route: 042

REACTIONS (26)
  - Cardiac failure acute [Fatal]
  - Proctalgia [Recovered/Resolved]
  - Colonic fistula [Unknown]
  - Cardiomegaly [Unknown]
  - Stoma creation [Unknown]
  - Aspiration [Unknown]
  - Cardiomyopathy [Unknown]
  - Gastrointestinal inflammation [Unknown]
  - Intestinal stenosis [Unknown]
  - Emphysema [Unknown]
  - Anal fistula [Unknown]
  - Peritonitis [Unknown]
  - Intervertebral discitis [Unknown]
  - Colitis ulcerative [Unknown]
  - Frequent bowel movements [Recovered/Resolved]
  - Colitis [Unknown]
  - General physical health deterioration [Unknown]
  - Weight decreased [Unknown]
  - Malnutrition [Unknown]
  - Gastrointestinal wall thickening [Unknown]
  - Frequent bowel movements [Unknown]
  - Crohn^s disease [Unknown]
  - General symptom [Unknown]
  - Diarrhoea [Unknown]
  - Osteitis [Unknown]
  - Abdominal pain [Unknown]

NARRATIVE: CASE EVENT DATE: 20221101
